FAERS Safety Report 20861016 (Version 1)
Quarter: 2022Q2

REPORT INFORMATION
  Report Type: Spontaneous
  Country: US (occurrence: None)
  Receive Date: 20220520
  Receipt Date: 20220520
  Transmission Date: 20220721
  Serious: Yes (Disabling)
  Sender: FDA-Public Use
  Company Number: None

PATIENT
  Sex: Female

DRUGS (1)
  1. SYNTHROID [Suspect]
     Active Substance: LEVOTHYROXINE SODIUM
     Indication: Hypothyroidism
     Dosage: FREQUENCY : DAILY;?
     Route: 048

REACTIONS (5)
  - Headache [None]
  - Asthenia [None]
  - Muscle spasms [None]
  - Irritability [None]
  - Vision blurred [None]

NARRATIVE: CASE EVENT DATE: 20220101
